FAERS Safety Report 20840855 (Version 1)
Quarter: 2022Q2

REPORT INFORMATION
  Report Type: Spontaneous
  Country: US (occurrence: None)
  Receive Date: 20220517
  Receipt Date: 20220517
  Transmission Date: 20220720
  Serious: Yes (Other)
  Sender: FDA-Public Use
  Company Number: None

PATIENT
  Age: 16 Year
  Sex: Female
  Weight: 49.5 kg

DRUGS (2)
  1. SPIRONOLACTONE [Suspect]
     Active Substance: SPIRONOLACTONE
     Indication: Acne
     Dosage: OTHER QUANTITY : 1 TABLET(S);?FREQUENCY : AT BEDTIME;?
     Route: 048
     Dates: start: 20220405, end: 20220502
  2. FLUOXETINE [Concomitant]
     Active Substance: FLUOXETINE HYDROCHLORIDE

REACTIONS (3)
  - Pain [None]
  - Appendicitis [None]
  - Adnexal torsion [None]

NARRATIVE: CASE EVENT DATE: 20220501
